FAERS Safety Report 8799008 (Version 1)
Quarter: 2012Q4

REPORT INFORMATION
  Report Type: Spontaneous
  Country: US (occurrence: None)
  Receive Date: 20120918
  Receipt Date: 20120918
  Transmission Date: 20130627
  Serious: Yes (Other)
  Sender: FDA-Public Use
  Company Number: None

PATIENT
  Age: 30 Year
  Sex: Female
  Weight: 56.7 kg

DRUGS (2)
  1. VESTURA [Suspect]
     Indication: PREMENSTRUAL DYSPHORIC DISORDER
     Route: 048
     Dates: start: 20120704, end: 20120801
  2. VESTURA [Suspect]
     Indication: ORAL CONTRACEPTION
     Route: 048
     Dates: start: 20120704, end: 20120801

REACTIONS (4)
  - Muscle spasms [None]
  - Metrorrhagia [None]
  - Product quality issue [None]
  - Product substitution issue [None]
